FAERS Safety Report 9419947 (Version 1)
Quarter: 2013Q3

REPORT INFORMATION
  Report Type: Spontaneous
  Country: US (occurrence: None)
  Receive Date: 20130724
  Receipt Date: 20130724
  Transmission Date: 20140515
  Serious: Yes (Life-Threatening, Hospitalization, Disabling)
  Sender: FDA-Public Use
  Company Number: None

PATIENT
  Age: 99 Year
  Sex: Female
  Weight: 90.9 kg

DRUGS (1)
  1. ACTEMRA [Suspect]
     Indication: RHEUMATOID ARTHRITIS
     Route: 042
     Dates: start: 20130613, end: 20120510

REACTIONS (13)
  - Fall [None]
  - Foot fracture [None]
  - Bacteraemia [None]
  - Staphylococcal infection [None]
  - Intra-abdominal haemorrhage [None]
  - Pancreatitis [None]
  - Pancreatic abscess [None]
  - Deep vein thrombosis [None]
  - Splenic infarction [None]
  - Osteomyelitis [None]
  - Systemic inflammatory response syndrome [None]
  - Respiratory disorder [None]
  - Back pain [None]
